FAERS Safety Report 23576784 (Version 2)
Quarter: 2024Q2

REPORT INFORMATION
  Report Type: Spontaneous
  Country: JP (occurrence: JP)
  Receive Date: 20240228
  Receipt Date: 20240607
  Transmission Date: 20240716
  Serious: Yes (Hospitalization)
  Sender: FDA-Public Use
  Company Number: JP-009507513-2402JPN008555

PATIENT
  Age: 57 Year
  Sex: Female

DRUGS (3)
  1. KEYTRUDA [Suspect]
     Active Substance: PEMBROLIZUMAB
     Indication: Squamous cell carcinoma of lung
     Dosage: 200 MILLIGRAM, Q3W
     Route: 041
     Dates: start: 20200630, end: 20200901
  2. CARBOPLATIN [Suspect]
     Active Substance: CARBOPLATIN
     Indication: Squamous cell carcinoma of lung
     Dosage: UNK
     Route: 065
  3. PACLITAXEL [Suspect]
     Active Substance: PACLITAXEL
     Indication: Squamous cell carcinoma of lung
     Dosage: UNK
     Route: 065

REACTIONS (2)
  - Secondary adrenocortical insufficiency [Recovering/Resolving]
  - Adrenocorticotropic hormone deficiency [Recovering/Resolving]

NARRATIVE: CASE EVENT DATE: 20210112
